FAERS Safety Report 8124685-1 (Version None)
Quarter: 2012Q1

REPORT INFORMATION
  Report Type: 
  Country: None (occurrence: None)
  Receive Date: 20120209
  Receipt Date: 20120203
  Transmission Date: 20120608
  Serious: Yes (Life-Threatening)
  Sender: FDA-Public Use
  Company Number: NO-EISAI INC-E2020-10249-SPO-NO

PATIENT
  Sex: Female

DRUGS (4)
  1. ARICEPT [Suspect]
     Route: 048
     Dates: start: 20120101
  2. ARICEPT [Suspect]
     Route: 048
     Dates: end: 20120103
  3. FORMOTEROL FUMARATE [Concomitant]
  4. SYMBICORT [Concomitant]

REACTIONS (2)
  - THROMBOCYTOPENIA [None]
  - NEUTROPENIA [None]
